FAERS Safety Report 4281979-8 (Version None)
Quarter: 2004Q1

REPORT INFORMATION
  Report Type: 
  Country: None (occurrence: None)
  Receive Date: 20040128
  Receipt Date: 20031231
  Transmission Date: 20041129
  Serious: No
  Sender: FDA-Public Use
  Company Number: SUS1-2003-00551

PATIENT
  Age: 16 Year
  Sex: Male
  Weight: 111.1 kg

DRUGS (2)
  1. ADDERALL XR (AMPHETAMINE ASPARTATE, AMPHETAMINE SULFATE, DEXTROAMPHETA [Suspect]
     Indication: ATTENTION DEFICIT/HYPERACTIVITY DISORDER
     Dosage: 50 MG
     Dates: start: 20020101, end: 20031201
  2. MULTIVITAMIN [Concomitant]

REACTIONS (5)
  - BACK PAIN [None]
  - CLONUS [None]
  - HYPERREFLEXIA [None]
  - NERVE CONDUCTION STUDIES ABNORMAL [None]
  - NERVE INJURY [None]
